FAERS Safety Report 25450032 (Version 1)
Quarter: 2025Q2

REPORT INFORMATION
  Report Type: Spontaneous
  Country: ES (occurrence: ES)
  Receive Date: 20250618
  Receipt Date: 20250618
  Transmission Date: 20250716
  Serious: Yes (Hospitalization)
  Sender: DR REDDYS
  Company Number: None

PATIENT
  Age: 50 Year
  Sex: Female

DRUGS (3)
  1. DAPTOMYCIN [Suspect]
     Active Substance: DAPTOMYCIN
     Indication: Abdominal infection
     Dosage: 700 MG EVERY 24 HOURS
     Route: 042
     Dates: start: 20250214, end: 20250224
  2. ERTAPENEM [Suspect]
     Active Substance: ERTAPENEM
     Indication: Abdominal infection
     Dosage: 1 G EVERY 24 HOURS
     Route: 042
     Dates: start: 20250213, end: 20250311
  3. AVIBACTAM SODIUM\CEFTAZIDIME [Suspect]
     Active Substance: AVIBACTAM SODIUM\CEFTAZIDIME
     Indication: Abdominal infection
     Dosage: 2 VIALES EVERY 8 HOURS
     Route: 042
     Dates: start: 20250214, end: 20250311

REACTIONS (1)
  - Erythema multiforme [Recovered/Resolved]

NARRATIVE: CASE EVENT DATE: 20250322
